FAERS Safety Report 7653050-6 (Version None)
Quarter: 2011Q3

REPORT INFORMATION
  Report Type: 
  Country: None (occurrence: None)
  Receive Date: 20110803
  Receipt Date: 20110725
  Transmission Date: 20111222
  Serious: Yes (Hospitalization)
  Sender: FDA-Public Use
  Company Number: US-ROCHE-793022

PATIENT
  Sex: Female
  Weight: 154 kg

DRUGS (5)
  1. BEVACIZUMAB [Suspect]
     Dosage: FREQUENCY: DAY 1 AND DAY 15
     Route: 042
     Dates: start: 20100218, end: 20110706
  2. LEVETIRACETAM [Concomitant]
     Dates: start: 20090901
  3. CEREBYX [Concomitant]
     Dates: start: 20110721
  4. TOPOTECAN [Suspect]
     Dosage: FREQUENCY: DAY 1, DAY 8 AND DAY 15
     Route: 042
     Dates: start: 20100218, end: 20110706
  5. WARFARIN [Concomitant]
     Indication: THROMBOSIS
     Dates: start: 20040701

REACTIONS (2)
  - STATUS EPILEPTICUS [None]
  - APHASIA [None]
